FAERS Safety Report 24736400 (Version 2)
Quarter: 2025Q1

REPORT INFORMATION
  Report Type: Spontaneous
  Country: ES (occurrence: ES)
  Receive Date: 20241216
  Receipt Date: 20250131
  Transmission Date: 20250408
  Serious: No
  Sender: AMGEN
  Company Number: ES-ROCHE-10000143904

PATIENT
  Sex: Female
  Weight: 58 kg

DRUGS (4)
  1. TRASTUZUMAB [Suspect]
     Active Substance: TRASTUZUMAB
     Indication: Breast cancer metastatic
     Dosage: 5.4 MILLIGRAM, Q3WK
     Route: 065
     Dates: start: 20220915, end: 20230424
  2. PERTUZUMAB [Suspect]
     Active Substance: PERTUZUMAB
     Indication: Breast cancer metastatic
     Dosage: 5.4 MILLIGRAM, Q3WK
     Route: 065
     Dates: start: 20220915, end: 20230424
  3. PACLITAXEL [Suspect]
     Active Substance: PACLITAXEL
     Indication: Breast cancer metastatic
     Dosage: 5.4 MILLIGRAM, Q3WK (32 CYCLES)
     Route: 065
     Dates: start: 20220915, end: 20230424
  4. TRASTUZUMAB DERUXTECAN [Suspect]
     Active Substance: TRASTUZUMAB DERUXTECAN
     Indication: Breast cancer metastatic
     Dosage: 5.4 MILLIGRAM, Q3WK
     Route: 065
     Dates: start: 20240424

REACTIONS (2)
  - Disease progression [Unknown]
  - Off label use [Unknown]
